FAERS Safety Report 7635311-X (Version None)
Quarter: 2011Q3

REPORT INFORMATION
  Report Type: 
  Country: None (occurrence: None)
  Receive Date: 20110726
  Receipt Date: 20110713
  Transmission Date: 20111222
  Serious: Yes (Hospitalization)
  Sender: FDA-Public Use
  Company Number: HU-ELI_LILLY_AND_COMPANY-HU201106008353

PATIENT
  Sex: Female
  Weight: 69.5 kg

DRUGS (4)
  1. LISPRO REGLISPRO [Suspect]
     Dosage: UNK
     Dates: start: 20110629
  2. ZOCOR [Concomitant]
     Dosage: UNK
     Dates: start: 20070101
  3. LISPRO REGLISPRO [Suspect]
     Indication: TYPE 1 DIABETES MELLITUS
     Dosage: UNK
     Dates: end: 20110627
  4. INSULIN ASPART [Suspect]
     Indication: TYPE 1 DIABETES MELLITUS
     Dosage: UNK
     Route: 058
     Dates: start: 20110216

REACTIONS (1)
  - DIABETIC KETOACIDOSIS [None]
